FAERS Safety Report 24046752 (Version 1)
Quarter: 2024Q3

REPORT INFORMATION
  Report Type: Spontaneous
  Country: US (occurrence: US)
  Receive Date: 20240703
  Receipt Date: 20240703
  Transmission Date: 20241016
  Serious: Yes (Other)
  Sender: INCYTE
  Company Number: US-INCYTE CORPORATION-2024IN006931

PATIENT

DRUGS (3)
  1. JAKAFI [Suspect]
     Active Substance: RUXOLITINIB
     Indication: Pleuroparenchymal fibroelastosis
     Dosage: UNK
     Route: 065
  2. BELUMOSUDIL [Concomitant]
     Active Substance: BELUMOSUDIL
     Indication: Pleuroparenchymal fibroelastosis
     Route: 065
  3. PIRFENIDONE [Concomitant]
     Active Substance: PIRFENIDONE
     Indication: Pleuroparenchymal fibroelastosis
     Route: 065

REACTIONS (3)
  - Pleuroparenchymal fibroelastosis [Unknown]
  - Disease progression [Unknown]
  - Off label use [Unknown]
